FAERS Safety Report 12235085 (Version 2)
Quarter: 2016Q2

REPORT INFORMATION
  Report Type: Spontaneous
  Country: US (occurrence: US)
  Receive Date: 20160404
  Receipt Date: 20160506
  Transmission Date: 20160815
  Serious: No
  Sender: FDA-Public Use
  Company Number: US-ASTRAZENECA-2016SE32503

PATIENT
  Sex: Male

DRUGS (1)
  1. BRILINTA [Suspect]
     Active Substance: TICAGRELOR
     Indication: ACUTE CORONARY SYNDROME
     Route: 048
     Dates: start: 201603

REACTIONS (11)
  - Anxiety [Unknown]
  - Pain in extremity [Not Recovered/Not Resolved]
  - Localised infection [Unknown]
  - Performance status decreased [Not Recovered/Not Resolved]
  - Blood disorder [Unknown]
  - Asthenia [Unknown]
  - Hypoaesthesia [Not Recovered/Not Resolved]
  - Blood urine present [Unknown]
  - Sensation of foreign body [Not Recovered/Not Resolved]
  - Tendonitis [Unknown]
  - Epistaxis [Not Recovered/Not Resolved]
